FAERS Safety Report 25704552 (Version 1)
Quarter: 2025Q3

REPORT INFORMATION
  Report Type: Spontaneous
  Country: TR (occurrence: TR)
  Receive Date: 20250820
  Receipt Date: 20250820
  Transmission Date: 20251020
  Serious: Yes (Life-Threatening, Other)
  Sender: CHEPLAPHARM
  Company Number: TR-BMED-L-2025-0013

PATIENT
  Age: 23 Year
  Sex: Female

DRUGS (4)
  1. OLANZAPINE [Suspect]
     Active Substance: OLANZAPINE
     Indication: Fear
  2. OLANZAPINE [Suspect]
     Active Substance: OLANZAPINE
     Indication: Insomnia
  3. RISPERIDONE [Suspect]
     Active Substance: RISPERIDONE
     Indication: Fear
  4. RISPERIDONE [Suspect]
     Active Substance: RISPERIDONE
     Indication: Insomnia

REACTIONS (2)
  - Suicide attempt [Recovering/Resolving]
  - Major depression [Recovering/Resolving]
